FAERS Safety Report 19966850 (Version 4)
Quarter: 2021Q4

REPORT INFORMATION
  Report Type: Spontaneous
  Country: CN (occurrence: CN)
  Receive Date: 20211019
  Receipt Date: 20211231
  Transmission Date: 20220304
  Serious: Yes (Hospitalization)
  Sender: FDA-Public Use
  Company Number: CN-NOVOPROD-855986

PATIENT
  Age: 60 Year
  Sex: Male

DRUGS (1)
  1. INSULIN ASPART [Suspect]
     Active Substance: INSULIN ASPART
     Indication: Product used for unknown indication
     Dosage: UNK
     Route: 065

REACTIONS (3)
  - Dizziness [Unknown]
  - Liquid product physical issue [Unknown]
  - Product contamination with body fluid [Unknown]

NARRATIVE: CASE EVENT DATE: 20211103
